FAERS Safety Report 15601982 (Version 1)
Quarter: 2018Q4

REPORT INFORMATION
  Report Type: Spontaneous
  Country: US (occurrence: US)
  Receive Date: 20181109
  Receipt Date: 20181109
  Transmission Date: 20190205
  Serious: No
  Sender: FDA-Public Use
  Company Number: US-009507513-1811USA000760

PATIENT
  Age: 21 Year
  Sex: Female

DRUGS (1)
  1. REMERON [Suspect]
     Active Substance: MIRTAZAPINE
     Route: 048

REACTIONS (4)
  - Depression [Unknown]
  - Hyperhidrosis [Unknown]
  - Balance disorder [Unknown]
  - Insomnia [Unknown]
